FAERS Safety Report 5225562-6 (Version None)
Quarter: 2007Q1

REPORT INFORMATION
  Report Type: 
  Country: None (occurrence: None)
  Receive Date: 20070131
  Receipt Date: 20070124
  Transmission Date: 20070707
  Serious: Yes (Hospitalization)
  Sender: FDA-Public Use
  Company Number: FR-PFIZER INC-2007007124

PATIENT
  Age: 58 Year
  Sex: Female
  Weight: 85 kg

DRUGS (2)
  1. FRAGMIN [Suspect]
     Indication: EMBOLISM
     Route: 058
     Dates: start: 20060911, end: 20060918
  2. FRAGMIN [Suspect]
     Indication: ARTERIAL THROMBOSIS

REACTIONS (2)
  - DEEP VEIN THROMBOSIS [None]
  - PHLEBITIS [None]
